FAERS Safety Report 5713733-1 (Version None)
Quarter: 2008Q2

REPORT INFORMATION
  Report Type: 
  Country: None (occurrence: None)
  Receive Date: 20080418
  Receipt Date: 20080407
  Transmission Date: 20081010
  Serious: Yes (Hospitalization)
  Sender: FDA-Public Use
  Company Number: GXKR2008GB03362

PATIENT
  Age: 59 Year
  Sex: Male

DRUGS (3)
  1. PHENYTOIN [Suspect]
     Indication: EPILEPSY
     Dosage: 300 MG, QD,
  2. OMEPRAZOLE [Suspect]
  3. VITAMIN B COMPLEX (CALCIUM PANTOTHENATE, NICOTINAMIDE, PYRIDOXINE HYDR [Concomitant]

REACTIONS (6)
  - CEREBELLAR SYNDROME [None]
  - DEPRESSED LEVEL OF CONSCIOUSNESS [None]
  - GAMMA-GLUTAMYLTRANSFERASE INCREASED [None]
  - INHIBITORY DRUG INTERACTION [None]
  - MEAN CELL VOLUME ABNORMAL [None]
  - THERAPEUTIC AGENT TOXICITY [None]
